FAERS Safety Report 8008733-5 (Version None)
Quarter: 2011Q4

REPORT INFORMATION
  Report Type: 
  Country: None (occurrence: None)
  Receive Date: 20111227
  Receipt Date: 20111108
  Transmission Date: 20120403
  Serious: Yes (Hospitalization, Other)
  Sender: FDA-Public Use
  Company Number: US-ROCHE-1008624

PATIENT
  Sex: Female
  Weight: 97.06 kg

DRUGS (6)
  1. POTASSIUM [Concomitant]
     Indication: HYPOKALAEMIA
     Route: 048
  2. PROCARDIA [Concomitant]
     Indication: HYPERTENSION
     Dosage: DAILY
     Route: 048
  3. XOLAIR [Suspect]
     Indication: PRODUCT USED FOR UNKNOWN INDICATION
     Route: 058
     Dates: start: 20101116
  4. DULERA ORAL INHALATION [Concomitant]
     Indication: ASTHMA
     Dosage: 200/5 TWO QD
  5. SINGULAIR [Concomitant]
     Indication: RHINITIS ALLERGIC
     Dosage: AT HP
     Route: 048
  6. ALDACTAZIDE [Concomitant]
     Indication: HYPERTENSION
     Dosage: 95-75 DAILY.
     Route: 048

REACTIONS (2)
  - PNEUMONIA [None]
  - RESPIRATORY TRACT INFECTION [None]
